FAERS Safety Report 8360620-9 (Version None)
Quarter: 2012Q2

REPORT INFORMATION
  Report Type: 
  Country: None (occurrence: None)
  Receive Date: 20120515
  Receipt Date: 20120427
  Transmission Date: 20120825
  Serious: No
  Sender: FDA-Public Use
  Company Number: US-ASTRAZENECA-2010SE27882

PATIENT
  Age: 24 Year
  Sex: Female

DRUGS (7)
  1. SEROQUEL [Suspect]
     Route: 048
  2. SEROQUEL [Suspect]
     Route: 048
  3. SEROQUEL [Suspect]
     Route: 048
  4. SEROQUEL [Suspect]
     Route: 048
  5. SEROQUEL [Suspect]
     Route: 048
  6. LITHIUM CARBONATE [Concomitant]
  7. SEROQUEL [Suspect]
     Route: 048

REACTIONS (8)
  - IRRITABILITY [None]
  - INSOMNIA [None]
  - DRUG DISPENSING ERROR [None]
  - SLEEP DISORDER [None]
  - WEIGHT FLUCTUATION [None]
  - EMOTIONAL DISORDER [None]
  - HYPERPHAGIA [None]
  - DEPRESSION [None]
